FAERS Safety Report 19184624 (Version 1)
Quarter: 2021Q2

REPORT INFORMATION
  Report Type: Spontaneous
  Country: US (occurrence: US)
  Receive Date: 20210427
  Receipt Date: 20210427
  Transmission Date: 20210717
  Serious: Yes (Hospitalization)
  Sender: FDA-Public Use
  Company Number: None

PATIENT
  Age: 18 Year
  Sex: Male
  Weight: 77.1 kg

DRUGS (1)
  1. CLOZAPINE. [Suspect]
     Active Substance: CLOZAPINE
     Indication: SCHIZOPHRENIA
     Route: 048
     Dates: start: 20020315, end: 20210328

REACTIONS (4)
  - Hypertension [None]
  - Tachycardia [None]
  - Hypovolaemia [None]
  - Myocarditis [None]

NARRATIVE: CASE EVENT DATE: 20210328
